FAERS Safety Report 12846375 (Version 1)
Quarter: 2016Q4

REPORT INFORMATION
  Report Type: Report from Study
  Country: FR (occurrence: FR)
  Receive Date: 20161014
  Receipt Date: 20161014
  Transmission Date: 20170207
  Serious: Yes (Hospitalization)
  Sender: FDA-Public Use
  Company Number: FR-ROCHE-1839414

PATIENT
  Sex: Female

DRUGS (14)
  1. IMUREL [Concomitant]
     Active Substance: AZATHIOPRINE SODIUM
  2. CORTANCYL [Concomitant]
     Active Substance: PREDNISONE
     Route: 065
  3. ADALIMUMAB [Concomitant]
     Active Substance: ADALIMUMAB
  4. HUMIRA [Concomitant]
     Active Substance: ADALIMUMAB
  5. RITUXIMAB [Suspect]
     Active Substance: RITUXIMAB
     Indication: RHEUMATOID ARTHRITIS
     Route: 042
     Dates: start: 20080310, end: 20091028
  6. TOCILIZUMAB [Concomitant]
     Active Substance: TOCILIZUMAB
     Route: 065
     Dates: start: 20091029
  7. DOMPERIDONE [Concomitant]
     Active Substance: DOMPERIDONE
  8. IMUREL [Concomitant]
     Active Substance: AZATHIOPRINE SODIUM
  9. AZATHIOPRINE. [Concomitant]
     Active Substance: AZATHIOPRINE
  10. INEXIUM [Concomitant]
     Active Substance: ESOMEPRAZOLE
  11. SALAZOPYRINE [Concomitant]
     Active Substance: SULFASALAZINE
     Route: 065
  12. ABATACEPT [Concomitant]
     Active Substance: ABATACEPT
  13. CACIT (FRANCE) [Concomitant]
  14. STILNOX [Concomitant]
     Active Substance: ZOLPIDEM TARTRATE

REACTIONS (9)
  - Respiratory disorder [Unknown]
  - Respiratory disorder [Not Recovered/Not Resolved]
  - Device related infection [Recovered/Resolved]
  - Arthritis bacterial [Recovered/Resolved]
  - Infected skin ulcer [Unknown]
  - Myositis [Not Recovered/Not Resolved]
  - General physical health deterioration [Unknown]
  - Overlap syndrome [Not Recovered/Not Resolved]
  - Varicose ulceration [Recovered/Resolved]

NARRATIVE: CASE EVENT DATE: 201011
